FAERS Safety Report 15191653 (Version 1)
Quarter: 2018Q3

REPORT INFORMATION
  Report Type: Spontaneous
  Country: US (occurrence: US)
  Receive Date: 20180626
  Receipt Date: 20180626
  Transmission Date: 20181010
  Serious: Yes (Hospitalization, Disabling, Other)
  Sender: FDA-Public Use
  Company Number: None

PATIENT
  Age: 30 Year
  Sex: Male
  Weight: 74.25 kg

DRUGS (2)
  1. CIPROFLOXIN [Suspect]
     Active Substance: CIPROFLOXACIN
     Indication: INFECTION
     Dosage: ?          QUANTITY:1 CAPSULE(S);?
     Route: 048
  2. MEN^S ONE?A?DAY [Concomitant]

REACTIONS (4)
  - Joint swelling [None]
  - Impaired work ability [None]
  - Walking aid user [None]
  - Bone disorder [None]

NARRATIVE: CASE EVENT DATE: 20170823
